FAERS Safety Report 5853324-5 (Version None)
Quarter: 2008Q3

REPORT INFORMATION
  Report Type: 
  Country: None (occurrence: None)
  Receive Date: 20080820
  Receipt Date: 20080815
  Transmission Date: 20090109
  Serious: Yes (Death, Hospitalization, Other)
  Sender: FDA-Public Use
  Company Number: 2008SP012681

PATIENT
  Age: 58 Year
  Sex: Male
  Weight: 88.7 kg

DRUGS (15)
  1. TEMOZOLOMIDE [Suspect]
     Indication: GLIOBLASTOMA MULTIFORME
     Dosage: 200 MG/M2 QD PO
     Route: 048
     Dates: start: 20071130, end: 20080602
  2. BEVACIZUMAB [Suspect]
     Indication: GLIOBLASTOMA MULTIFORME
     Dosage: 10 MG/KG UNK IV
     Route: 042
     Dates: start: 20071204, end: 20080514
  3. DECADDRON [Concomitant]
  4. LIPITOR [Concomitant]
  5. NEXIUM [Concomitant]
  6. HYDROCHLOROTHIAZIDE [Concomitant]
  7. KEPPRA [Concomitant]
  8. TRINOTECAN [Concomitant]
  9. ATIVAN [Concomitant]
  10. LOPRESSOR [Concomitant]
  11. MAXIPIME [Concomitant]
  12. PERCOCET [Concomitant]
  13. PHENYTOIN [Concomitant]
  14. VANCOMYCIN HYDROCHLORIDE [Concomitant]
  15. ZOFRAN [Concomitant]

REACTIONS (20)
  - BALANCE DISORDER [None]
  - BURNS THIRD DEGREE [None]
  - CEREBRAL ASPERGILLOSIS [None]
  - CEREBROVASCULAR ACCIDENT [None]
  - CONFUSIONAL STATE [None]
  - CONVULSION [None]
  - DYSKINESIA [None]
  - FATIGUE [None]
  - HAEMATOCRIT DECREASED [None]
  - HAEMOGLOBIN DECREASED [None]
  - INTRACRANIAL PRESSURE INCREASED [None]
  - MUSCULAR WEAKNESS [None]
  - NAUSEA [None]
  - POST PROCEDURAL HAEMORRHAGE [None]
  - PYREXIA [None]
  - SARCOMA [None]
  - SEPSIS [None]
  - UNRESPONSIVE TO STIMULI [None]
  - VOMITING [None]
  - WOUND INFECTION [None]
